FAERS Safety Report 9734149 (Version 3)
Quarter: 2014Q1

REPORT INFORMATION
  Report Type: Spontaneous
  Country: AU (occurrence: AU)
  Receive Date: 20131205
  Receipt Date: 20140221
  Transmission Date: 20141002
  Serious: Yes (Other)
  Sender: FDA-Public Use
  Company Number: AU-009507513-1311AUS011546

PATIENT
  Age: 60 Year
  Sex: Female
  Weight: 63.8 kg

DRUGS (3)
  1. VICTRELIS 200 MG [Suspect]
     Indication: HEPATITIS C
     Dosage: 800 MG, TID
     Route: 048
     Dates: start: 20131111
  2. RIBAVIRIN [Suspect]
     Indication: HEPATITIS C
     Dosage: 800 MG, QD
     Route: 048
     Dates: start: 20131014
  3. PEGATRON [Suspect]
     Indication: HEPATITIS C
     Dosage: 96 MCG, WEEKLY
     Route: 058
     Dates: start: 20131014

REACTIONS (2)
  - Pharyngitis [Recovered/Resolved]
  - Immunosuppression [Unknown]
